FAERS Safety Report 5506671-0 (Version None)
Quarter: 2007Q4

REPORT INFORMATION
  Report Type: 
  Country: None (occurrence: None)
  Receive Date: 20071101
  Receipt Date: 20071026
  Transmission Date: 20080405
  Serious: Yes (Death)
  Sender: FDA-Public Use
  Company Number: 2007SP020049

PATIENT
  Age: 61 Year
  Sex: Male
  Weight: 92.5338 kg

DRUGS (1)
  1. TEMODAR [Suspect]
     Indication: BRAIN NEOPLASM
     Dosage: 430 MG;QD;PO
     Route: 048

REACTIONS (2)
  - BRAIN NEOPLASM MALIGNANT [None]
  - MALIGNANT NEOPLASM PROGRESSION [None]
